FAERS Safety Report 5123340-X (Version None)
Quarter: 2006Q4

REPORT INFORMATION
  Report Type: 
  Country: None (occurrence: None)
  Receive Date: 20061005
  Receipt Date: 20060922
  Transmission Date: 20070319
  Serious: Yes (Other)
  Sender: FDA-Public Use
  Company Number: 14862

PATIENT
  Age: 74 Year
  Sex: Female
  Weight: 83 kg

DRUGS (5)
  1. PACLITAXEL [Suspect]
     Indication: NON-SMALL CELL LUNG CANCER
     Dosage: 311 MG DAILY IV
     Route: 042
     Dates: start: 20060305, end: 20060305
  2. CARBOPLATIN [Concomitant]
  3. FORTECORTIN [Concomitant]
  4. TAREGIL [Concomitant]
  5. ZANTIC [Concomitant]

REACTIONS (2)
  - ERYTHEMA [None]
  - RESTLESSNESS [None]
